FAERS Safety Report 8824765 (Version 1)
Quarter: 2012Q4

REPORT INFORMATION
  Report Type: 
  Country: US (occurrence: US)
  Receive Date: 20121004
  Receipt Date: 20121004
  Transmission Date: 20130627
  Serious: Yes (Other)
  Sender: FDA-Public Use
  Company Number: US-TEVA-362116USA

PATIENT
  Sex: Male
  Weight: 72.64 kg

DRUGS (2)
  1. PROAIR HFA [Suspect]
     Indication: ASTHMA
     Dosage: 4 puffs
     Route: 055
  2. PROAIR HFA [Suspect]
     Indication: CHRONIC OBSTRUCTIVE PULMONARY DISEASE

REACTIONS (4)
  - Alcohol poisoning [Recovered/Resolved]
  - Overdose [Recovered/Resolved]
  - Heart rate increased [Recovered/Resolved]
  - Palpitations [None]
